FAERS Safety Report 4995861-1 (Version None)
Quarter: 2006Q2

REPORT INFORMATION
  Report Type: 
  Country: None (occurrence: None)
  Receive Date: 20060504
  Receipt Date: 20060418
  Transmission Date: 20061013
  Serious: Yes (Life-Threatening)
  Sender: FDA-Public Use
  Company Number: S06-FIN-01338-02

PATIENT
  Sex: Female
  Weight: 1.785 kg

DRUGS (3)
  1. CITALOPRAM HYDROBROMIDE [Suspect]
     Dosage: 20 MG QD TRANSPLACENTAL
     Route: 064
     Dates: end: 20060319
  2. ANTIBIOTICS [Concomitant]
  3. CORTICOSTEROIDS [Concomitant]

REACTIONS (8)
  - DRUG EXPOSURE DURING PREGNANCY [None]
  - HAEMATOCRIT DECREASED [None]
  - HAEMOGLOBIN DECREASED [None]
  - INFANTILE APNOEIC ATTACK [None]
  - PATENT DUCTUS ARTERIOSUS [None]
  - PLATELET COUNT INCREASED [None]
  - PREMATURE BABY [None]
  - WHITE BLOOD CELL COUNT INCREASED [None]
